FAERS Safety Report 10582535 (Version 1)
Quarter: 2014Q4

REPORT INFORMATION
  Report Type: Spontaneous
  Country: AE (occurrence: AE)
  Receive Date: 20141113
  Receipt Date: 20141113
  Transmission Date: 20150529
  Serious: Yes (Life-Threatening, Hospitalization)
  Sender: FDA-Public Use
  Company Number: PHHY2014AE145190

PATIENT
  Age: 34 Year
  Sex: Female

DRUGS (4)
  1. RISPERIDONE. [Suspect]
     Active Substance: RISPERIDONE
     Indication: PSYCHOTIC DISORDER
     Route: 065
  2. HALOPERIDOL. [Suspect]
     Active Substance: HALOPERIDOL
     Indication: PSYCHOTIC DISORDER
     Route: 065
  3. LORAZEPAM. [Suspect]
     Active Substance: LORAZEPAM
     Indication: PRODUCT USED FOR UNKNOWN INDICATION
     Route: 065
  4. OLANZAPINE. [Suspect]
     Active Substance: OLANZAPINE
     Indication: PSYCHOTIC DISORDER
     Route: 065

REACTIONS (13)
  - Dyskinesia [Recovering/Resolving]
  - Blood pressure fluctuation [Recovering/Resolving]
  - Autonomic nervous system imbalance [Recovering/Resolving]
  - Confusional state [Recovering/Resolving]
  - Muscle rigidity [Recovering/Resolving]
  - Respiration abnormal [Recovering/Resolving]
  - Blood creatine phosphokinase increased [Recovering/Resolving]
  - Musculoskeletal stiffness [Recovering/Resolving]
  - Heart rate irregular [Recovering/Resolving]
  - Neuroleptic malignant syndrome [Recovering/Resolving]
  - Body temperature increased [Recovering/Resolving]
  - Bruxism [Recovering/Resolving]
  - Drug ineffective [Unknown]
